FAERS Safety Report 10343101 (Version 1)
Quarter: 2014Q3

REPORT INFORMATION
  Report Type: Report from Study
  Country: BR (occurrence: BR)
  Receive Date: 20140725
  Receipt Date: 20140725
  Transmission Date: 20150326
  Serious: Yes (Death, Other)
  Sender: FDA-Public Use
  Company Number: PHHY2014BR091091

PATIENT
  Age: 90 Year
  Sex: Male

DRUGS (2)
  1. COMBODART [Concomitant]
     Active Substance: DUTASTERIDE\TAMSULOSIN
     Indication: PROSTATIC DISORDER
     Dosage: UNK UKN, UNK
  2. FORASEQ [Suspect]
     Active Substance: BUDESONIDE\FORMOTEROL FUMARATE
     Indication: EMPHYSEMA
     Dosage: UNK UKN, UNK (TWICE, NOT CONTINUOSLY)
     Route: 055

REACTIONS (6)
  - General physical health deterioration [Fatal]
  - Cardiac failure [Unknown]
  - Asthenia [Unknown]
  - Peripheral venous disease [Unknown]
  - Thrombosis [Unknown]
  - Emphysema [Fatal]

NARRATIVE: CASE EVENT DATE: 201405
